FAERS Safety Report 7883636-5 (Version None)
Quarter: 2011Q4

REPORT INFORMATION
  Report Type: 
  Country: None (occurrence: None)
  Receive Date: 20111031
  Receipt Date: 20111019
  Transmission Date: 20120403
  Serious: Yes (Hospitalization)
  Sender: FDA-Public Use
  Company Number: MPS1-1000583

PATIENT
  Age: 2 Year
  Sex: Female
  Weight: 12.4 kg

DRUGS (12)
  1. ACETYLCYSTEINE [Concomitant]
  2. LANSOPRAZOLE [Concomitant]
  3. ALBUTEROL SULFATE [Concomitant]
  4. AMLODIPINE [Concomitant]
  5. MAGNESIUM (MAGNESIUM) [Concomitant]
  6. ACYCLOVIR [Concomitant]
  7. FLUCONAZOLE [Concomitant]
  8. ALDURAZYME [Suspect]
     Indication: MUCOPOLYSACCHARIDOSIS I
     Dosage: 5.6 MG, INTRAVENOUS
     Route: 042
     Dates: start: 20110118, end: 20111014
  9. FLUTICASONE PROPIONATE [Concomitant]
  10. CYCLOSPORINE [Concomitant]
  11. GRANISETRON [Concomitant]
  12. GRAVOL (DIMENHYDRINATE) [Concomitant]

REACTIONS (3)
  - FEBRILE NEUTROPENIA [None]
  - BACTERAEMIA [None]
  - DEVICE RELATED INFECTION [None]
